FAERS Safety Report 16727603 (Version 1)
Quarter: 2019Q3

REPORT INFORMATION
  Report Type: Spontaneous
  Country: JP (occurrence: JP)
  Receive Date: 20190822
  Receipt Date: 20190822
  Transmission Date: 20191005
  Serious: Yes (Other)
  Sender: FDA-Public Use
  Company Number: JP-ROCHE-2281826

PATIENT
  Age: 7 Decade
  Sex: Female

DRUGS (3)
  1. HERCEPTIN [Suspect]
     Active Substance: TRASTUZUMAB
     Indication: BREAST CANCER
     Dosage: DOSAGE IS UNCERTAIN. ON 21/JAN/2019, RECEIVED MOST RECENT DOSE OF TRASTUZUMAB.
     Route: 041
     Dates: start: 20181226
  2. PERJETA [Suspect]
     Active Substance: PERTUZUMAB
     Indication: BREAST CANCER
     Dosage: 420MG/14ML, ON 21/JAN/2019, RECEIVED MOST RECENT DOSE OF PERTUZUMAB.
     Route: 041
     Dates: start: 20181226
  3. DOCETAXEL. [Suspect]
     Active Substance: DOCETAXEL
     Indication: BREAST CANCER
     Dosage: ON 21/JAN/2019, RECEIVED MOST RECENT DOSE OF DOCETAXEL HYDRATE.
     Route: 041
     Dates: start: 20181226

REACTIONS (2)
  - Renal impairment [Recovered/Resolved]
  - Diarrhoea [Not Recovered/Not Resolved]

NARRATIVE: CASE EVENT DATE: 20181226
